FAERS Safety Report 5028244-9 (Version None)
Quarter: 2006Q2

REPORT INFORMATION
  Report Type: 
  Country: None (occurrence: None)
  Receive Date: 20060612
  Receipt Date: 20051004
  Transmission Date: 20061013
  Serious: Yes (Hospitalization)
  Sender: FDA-Public Use
  Company Number: CHNY2005AU02861

PATIENT
  Age: 74 Year
  Sex: Female

DRUGS (4)
  1. ALPHARPHARM QUITX (NCH)(NICOTINE) TRANS-THERAPEUTIC-SYSTEM [Suspect]
     Dosage: 21 MG, TRANSDERMAL
     Route: 062
     Dates: start: 20050901
  2. VENTOLIN [Concomitant]
  3. ATROVENT [Concomitant]
  4. OXYGEN (OXYGEN) [Concomitant]

REACTIONS (5)
  - APPLICATION SITE DERMATITIS [None]
  - APPLICATION SITE ERYTHEMA [None]
  - INFECTIVE EXACERBATION OF CHRONIC OBSTRUCTIVE AIRWAYS DISEASE [None]
  - PRURITUS [None]
  - RASH MACULO-PAPULAR [None]
